FAERS Safety Report 4466341-7 (Version None)
Quarter: 2004Q4

REPORT INFORMATION
  Report Type: 
  Country: None (occurrence: None)
  Receive Date: 20041005
  Receipt Date: 20040924
  Transmission Date: 20050328
  Serious: Yes (Hospitalization)
  Sender: FDA-Public Use
  Company Number: JP-GLAXOSMITHKLINE-B0346597A

PATIENT
  Age: 40 Year
  Sex: Male

DRUGS (8)
  1. EPIVIR [Suspect]
     Indication: ACQUIRED IMMUNODEFICIENCY SYNDROME
     Dosage: 150MG TWICE PER DAY
     Route: 048
     Dates: start: 20021001, end: 20030724
  2. ZERIT [Suspect]
     Indication: ACQUIRED IMMUNODEFICIENCY SYNDROME
     Dosage: 80MG PER DAY
     Route: 048
     Dates: start: 20021001, end: 20030724
  3. KALETRA [Suspect]
     Indication: ACQUIRED IMMUNODEFICIENCY SYNDROME
     Route: 048
     Dates: start: 20021001, end: 20030724
  4. GANCICLOVIR SODIUM [Concomitant]
     Indication: PNEUMONIA CYTOMEGALOVIRAL
     Dosage: 250MGK TWICE PER DAY
     Route: 042
     Dates: start: 20020814, end: 20020903
  5. METOCLOPRAMIDE HYDROCHLORIDE [Concomitant]
     Indication: GASTRITIS
     Dosage: 5MG TWICE PER DAY
     Route: 065
     Dates: start: 20021001, end: 20030724
  6. FLUCONAZOLE [Concomitant]
     Indication: SYSTEMIC MYCOSIS
     Dosage: 100MG PER DAY
     Route: 065
     Dates: start: 20021001, end: 20030724
  7. CO-TRIMOXAZOLE [Concomitant]
     Indication: PNEUMOCYSTIS CARINII PNEUMONIA
     Route: 048
     Dates: start: 20020827, end: 20030724
  8. PENTAMIDINE [Concomitant]
     Indication: PNEUMOCYSTIS CARINII PNEUMONIA
     Dosage: 200MG PER DAY
     Dates: start: 20020918, end: 20021001

REACTIONS (3)
  - ASTHENIA [None]
  - GUILLAIN-BARRE SYNDROME [None]
  - HYPOAESTHESIA [None]
